FAERS Safety Report 4689133-2 (Version None)
Quarter: 2005Q2

REPORT INFORMATION
  Report Type: 
  Country: None (occurrence: None)
  Receive Date: 20050613
  Receipt Date: 20041215
  Transmission Date: 20051028
  Serious: No
  Sender: FDA-Public Use
  Company Number: 2004UW25550

PATIENT
  Age: 67 Year
  Sex: Female
  Weight: 73.6 kg

DRUGS (10)
  1. CRESTOR [Suspect]
     Indication: BLOOD CHOLESTEROL INCREASED
     Route: 048
     Dates: start: 20040517
  2. CRESTOR [Suspect]
     Route: 048
     Dates: start: 20041201
  3. INSULIN [Concomitant]
  4. SYNTHROID [Concomitant]
  5. LENOXIN [Concomitant]
  6. ALTACE [Concomitant]
  7. TRICOR [Concomitant]
  8. NIASPAN [Concomitant]
  9. CORTISONE [Concomitant]
  10. LOPID [Concomitant]

REACTIONS (2)
  - LICHENOID KERATOSIS [None]
  - SCAR [None]
